FAERS Safety Report 7367505-5 (Version None)
Quarter: 2011Q1

REPORT INFORMATION
  Report Type: 
  Country: None (occurrence: None)
  Receive Date: 20110322
  Receipt Date: 20110223
  Transmission Date: 20110831
  Serious: No
  Sender: FDA-Public Use
  Company Number: US-B.I. PHARMACEUTICALS,INC./RIDGEFIELD-2011-BP-06741BP

PATIENT
  Sex: Female

DRUGS (5)
  1. PRILOSEC [Concomitant]
     Indication: PROPHYLAXIS
  2. PRADAXA [Suspect]
     Dosage: 300 MG
     Route: 048
     Dates: start: 20110218
  3. ASPIRIN [Concomitant]
     Indication: ATRIAL FIBRILLATION
  4. PRADAXA [Suspect]
     Indication: ATRIAL FIBRILLATION
     Dosage: 300 MG
     Route: 048
     Dates: start: 20101201, end: 20110201
  5. SOTALOL HCL [Concomitant]
     Indication: ATRIAL FIBRILLATION

REACTIONS (3)
  - FLATULENCE [None]
  - VOMITING [None]
  - ABDOMINAL DISTENSION [None]
